FAERS Safety Report 23611112 (Version 1)
Quarter: 2024Q1

REPORT INFORMATION
  Report Type: Spontaneous
  Country: US (occurrence: None)
  Receive Date: 20240308
  Receipt Date: 20240308
  Transmission Date: 20240410
  Serious: Yes (Hospitalization)
  Sender: FDA-Public Use
  Company Number: None

PATIENT
  Sex: Male

DRUGS (3)
  1. DOFETILIDE [Suspect]
     Active Substance: DOFETILIDE
     Indication: Atrial fibrillation
     Dosage: 125MCG  BD PO
     Route: 048
     Dates: start: 202203
  2. TYVASO DPI MAINT KIT PWD [Concomitant]
  3. SLIDENAFIL CITRATE [Concomitant]

REACTIONS (2)
  - Peripheral swelling [None]
  - Hypotension [None]
